FAERS Safety Report 4461967-9 (Version None)
Quarter: 2004Q3

REPORT INFORMATION
  Report Type: 
  Country: None (occurrence: None)
  Receive Date: 20040927
  Receipt Date: 20040927
  Transmission Date: 20050211
  Serious: Yes (Life-Threatening)
  Sender: FDA-Public Use
  Company Number: None

PATIENT
  Age: 26 Year
  Sex: Female
  Weight: 49.8957 kg

DRUGS (1)
  1. CELEBREX [Suspect]
     Indication: ARTHRITIS
     Dosage: 1 TABLET ONCE DAILY ORAL
     Route: 048
     Dates: start: 19990624, end: 19991031

REACTIONS (8)
  - ALOPECIA [None]
  - ASTHMA [None]
  - GASTROINTESTINAL DISORDER [None]
  - HEAT STROKE [None]
  - PHOTOSENSITIVITY REACTION [None]
  - STEVENS-JOHNSON SYNDROME [None]
  - SWEAT GLAND DISORDER [None]
  - VISUAL ACUITY REDUCED [None]
